FAERS Safety Report 8725035 (Version 2)
Quarter: 2015Q2

REPORT INFORMATION
  Report Type: Report from Study
  Country: US (occurrence: US)
  Receive Date: 20120813
  Receipt Date: 20150630
  Transmission Date: 20150821
  Serious: Yes (Hospitalization)
  Sender: FDA-Public Use
  Company Number: US-ROCHE-1099926

PATIENT
  Age: 51 Year
  Sex: Male

DRUGS (4)
  1. CARDIZEM [Concomitant]
     Active Substance: DILTIAZEM HYDROCHLORIDE
     Route: 065
  2. ALLOPURINOL. [Concomitant]
     Active Substance: ALLOPURINOL
     Route: 065
  3. ASPIRIN. [Concomitant]
     Active Substance: ASPIRIN
     Route: 065
  4. ACTIVASE [Suspect]
     Active Substance: ALTEPLASE
     Indication: ACUTE MYOCARDIAL INFARCTION
     Dosage: MG BOLUS THEN 52MG OVER 1ST HOUR
     Route: 065

REACTIONS (7)
  - Ventricular fibrillation [Unknown]
  - Ecchymosis [Unknown]
  - Swollen tongue [Unknown]
  - Electrocardiogram ST segment elevation [Unknown]
  - Vomiting [Unknown]
  - Seizure [Unknown]
  - Chest pain [Unknown]
